FAERS Safety Report 24563370 (Version 5)
Quarter: 2024Q4

REPORT INFORMATION
  Report Type: Report from Study
  Country: MX (occurrence: MX)
  Receive Date: 20241030
  Receipt Date: 20241230
  Transmission Date: 20250114
  Serious: Yes (Hospitalization, Disabling, Other)
  Sender: NOVARTIS
  Company Number: MX-002147023-NVSC2024MX208105

PATIENT
  Age: 47 Year
  Sex: Female
  Weight: 71 kg

DRUGS (24)
  1. KISQALI [Suspect]
     Active Substance: RIBOCICLIB
     Indication: Breast cancer
     Dosage: 3 DOSAGE FORM, QD
     Route: 048
     Dates: start: 20240201, end: 20240805
  2. KISQALI [Suspect]
     Active Substance: RIBOCICLIB
     Indication: Metastases to bone
     Dosage: 3 DOSAGE FORM, QD IN MORNING
     Route: 048
     Dates: start: 20240218
  3. KISQALI [Suspect]
     Active Substance: RIBOCICLIB
     Indication: Metastases to spine
     Dosage: 3 DOSAGE FORM, QD
     Route: 048
     Dates: start: 20240219
  4. KISQALI [Suspect]
     Active Substance: RIBOCICLIB
     Dosage: 600 MG (3 OF 200MG), QD IN THE AFTERNOON
     Route: 048
  5. KISQALI [Suspect]
     Active Substance: RIBOCICLIB
     Dosage: 600 MG (3 OF 200MG), QD
     Route: 048
  6. KISQALI [Suspect]
     Active Substance: RIBOCICLIB
     Dosage: 600 MG, QD (3 OF 200 MG)
     Route: 048
     Dates: start: 202402
  7. KISQALI [Suspect]
     Active Substance: RIBOCICLIB
     Dosage: 3 DOSAGE FORM, QD
     Route: 048
     Dates: end: 20240809
  8. KISQALI [Suspect]
     Active Substance: RIBOCICLIB
     Dosage: 3 DOSAGE FORM, QD
     Route: 048
     Dates: start: 20240811
  9. KISQALI [Suspect]
     Active Substance: RIBOCICLIB
     Dosage: 3 DOSAGE FORM, QD
     Route: 048
     Dates: start: 20240813
  10. KISQALI [Suspect]
     Active Substance: RIBOCICLIB
     Dosage: 3 DOSAGE FORM (3 (200MG))
     Route: 048
     Dates: end: 202411
  11. ZOLEDRONIC ACID [Suspect]
     Active Substance: ZOLEDRONIC ACID
     Indication: Breast cancer
     Dosage: 1 DOSAGE FORM, QMO
     Route: 042
     Dates: start: 20240219
  12. ZOLEDRONIC ACID [Suspect]
     Active Substance: ZOLEDRONIC ACID
     Dosage: UNK
     Route: 042
     Dates: start: 202402
  13. ONDANSETRON [Concomitant]
     Active Substance: ONDANSETRON
     Indication: Bone pain
     Dosage: 1 DOSAGE FORM, Q24H
     Route: 048
     Dates: start: 20240219
  14. ONDANSETRON [Concomitant]
     Active Substance: ONDANSETRON
     Indication: Nausea
     Dosage: 1 DOSAGE FORM, QD
     Route: 048
     Dates: start: 202403
  15. TRAMADOL [Concomitant]
     Active Substance: TRAMADOL
     Indication: Bone pain
     Dosage: 1 DOSAGE FORM, Q12H
     Route: 048
     Dates: start: 20240219
  16. PREGABALIN [Concomitant]
     Active Substance: PREGABALIN
     Indication: Bone pain
     Dosage: 1 DOSAGE FORM, Q12H
     Route: 048
     Dates: start: 20240219
  17. CELECOXIB [Concomitant]
     Active Substance: CELECOXIB
     Indication: Bone pain
     Dosage: 1 DOSAGE FORM, Q24H
     Route: 048
     Dates: start: 20240219
  18. Imipramina [Concomitant]
     Indication: Bone pain
     Dosage: 1 DOSAGE FORM, Q24H
     Route: 048
     Dates: start: 20240219
  19. Imipramina [Concomitant]
     Dosage: 1 DOSAGE FORM, QD
     Route: 048
     Dates: start: 202403
  20. LETROZOLE [Concomitant]
     Active Substance: LETROZOLE
     Indication: Breast cancer
     Dosage: 1 DOSAGE FORM, Q24H (EVERY 24 HOURS)
     Route: 048
     Dates: start: 20240219
  21. CLONAZEPAM [Concomitant]
     Active Substance: CLONAZEPAM
     Indication: Sleep disorder
     Dosage: 3 DOSAGE FORM (DROPS),(Q24H) EVERY 24 HOURS AT NIGHT
     Route: 048
     Dates: start: 20240219
  22. CLONAZEPAM [Concomitant]
     Active Substance: CLONAZEPAM
     Dosage: 3 DOSAGE FORM (DROPS), QD, BEFORE SLEEPING
     Route: 048
     Dates: start: 202403
  23. ACETAMINOPHEN\TRAMADOL [Concomitant]
     Active Substance: ACETAMINOPHEN\TRAMADOL
     Indication: Bone pain
     Dosage: 2 DOSAGE FORM, QD
     Route: 048
     Dates: start: 202403
  24. ANASTROZOLE [Concomitant]
     Active Substance: ANASTROZOLE
     Indication: Radiotherapy
     Dosage: 1 DOSAGE FORM, QD
     Route: 048
     Dates: start: 202403

REACTIONS (61)
  - Feeling hot [Not Recovered/Not Resolved]
  - Fatigue [Recovering/Resolving]
  - Body temperature increased [Recovered/Resolved]
  - Nausea [Recovered/Resolved]
  - Abdominal pain [Recovered/Resolved]
  - Intestinal obstruction [Recovered/Resolved]
  - Blindness [Not Recovered/Not Resolved]
  - Pain [Recovered/Resolved]
  - Gait disturbance [Recovered/Resolved]
  - Thirst [Not Recovered/Not Resolved]
  - Chills [Recovering/Resolving]
  - Dry mouth [Recovering/Resolving]
  - Constipation [Not Recovered/Not Resolved]
  - Dizziness [Not Recovered/Not Resolved]
  - Depression [Recovered/Resolved]
  - Crying [Recovered/Resolved]
  - Feeling abnormal [Recovered/Resolved]
  - Depressed mood [Not Recovered/Not Resolved]
  - Crying [Recovered/Resolved]
  - Feeling abnormal [Recovered/Resolved]
  - Abdominal pain upper [Not Recovered/Not Resolved]
  - Abdominal discomfort [Not Recovered/Not Resolved]
  - Overweight [Unknown]
  - Feeling of despair [Recovered/Resolved]
  - Anxiety [Not Recovered/Not Resolved]
  - Abnormal behaviour [Recovered/Resolved]
  - Fear [Not Recovered/Not Resolved]
  - Bone pain [Recovering/Resolving]
  - Disorientation [Unknown]
  - Weight decreased [Recovered/Resolved]
  - Feeding disorder [Recovered/Resolved]
  - Food aversion [Not Recovered/Not Resolved]
  - Headache [Recovered/Resolved]
  - Head discomfort [Recovered/Resolved]
  - Anger [Not Recovered/Not Resolved]
  - Alopecia [Not Recovered/Not Resolved]
  - Irritability [Not Recovered/Not Resolved]
  - Madarosis [Not Recovered/Not Resolved]
  - Crying [Recovering/Resolving]
  - Hunger [Not Recovered/Not Resolved]
  - Malaise [Unknown]
  - Vomiting [Recovered/Resolved]
  - Feeling of despair [Recovered/Resolved]
  - Asthenia [Recovered/Resolved]
  - Pain in extremity [Recovering/Resolving]
  - Ill-defined disorder [Recovering/Resolving]
  - Off label use [Unknown]
  - Diarrhoea [Unknown]
  - Dengue fever [Recovered/Resolved]
  - Pyrexia [Recovered/Resolved]
  - Pain [Recovered/Resolved]
  - Arthralgia [Recovered/Resolved]
  - Back pain [Recovered/Resolved]
  - Abdominal pain [Recovered/Resolved]
  - Nausea [Recovered/Resolved]
  - Vomiting [Recovered/Resolved]
  - Depression [Recovered/Resolved]
  - Reflux gastritis [Recovering/Resolving]
  - Increased appetite [Not Recovered/Not Resolved]
  - Weight decreased [Not Recovered/Not Resolved]
  - Product availability issue [Unknown]

NARRATIVE: CASE EVENT DATE: 20240201
